FAERS Safety Report 4314238-5 (Version None)
Quarter: 2004Q1

REPORT INFORMATION
  Report Type: 
  Country: None (occurrence: None)
  Receive Date: 20040309
  Receipt Date: 20040309
  Transmission Date: 20041129
  Serious: Yes (Other)
  Sender: FDA-Public Use
  Company Number: None

PATIENT
  Age: 56 Year
  Sex: Female
  Weight: 47.6277 kg

DRUGS (5)
  1. NARDIL [Suspect]
     Indication: GENERALISED ANXIETY DISORDER
     Dosage: BID
  2. NARDIL [Suspect]
     Indication: MAJOR DEPRESSION
     Dosage: BID
  3. NARDIL [Suspect]
     Indication: OBSESSIVE-COMPULSIVE DISORDER
     Dosage: BID
  4. NARDIL [Suspect]
     Indication: PANIC DISORDER
     Dosage: BID
  5. NARDIL [Suspect]
     Indication: SOCIAL PHOBIA
     Dosage: BID

REACTIONS (2)
  - DRUG EFFECT DECREASED [None]
  - PHARMACEUTICAL PRODUCT COMPLAINT [None]
